FAERS Safety Report 5854664-6 (Version None)
Quarter: 2008Q3

REPORT INFORMATION
  Report Type: 
  Country: None (occurrence: None)
  Receive Date: 20080822
  Receipt Date: 20080812
  Transmission Date: 20090109
  Serious: Yes (Life-Threatening, Hospitalization)
  Sender: FDA-Public Use
  Company Number: AU-PFIZER INC-2008068071

PATIENT
  Sex: Female

DRUGS (2)
  1. CYCLOKAPRON (IV) [Suspect]
     Indication: CEREBROVASCULAR DISORDER
     Dosage: DAILY DOSE:8GRAM-FREQ:DAILY
     Route: 048
     Dates: start: 20070603, end: 20070608
  2. PRIMOLUT-N [Suspect]
     Indication: CEREBROVASCULAR DISORDER
     Dosage: DAILY DOSE:5MG-FREQ:DAILY
     Route: 048
     Dates: start: 20070519, end: 20070608

REACTIONS (4)
  - CEREBROVASCULAR ACCIDENT [None]
  - DYSPHASIA [None]
  - HEMIANOPIA [None]
  - HEMIPARESIS [None]
